FAERS Safety Report 6257734-6 (Version None)
Quarter: 2009Q3

REPORT INFORMATION
  Report Type: 
  Country: None (occurrence: None)
  Receive Date: 20090706
  Receipt Date: 20090626
  Transmission Date: 20100115
  Serious: Yes (Other)
  Sender: FDA-Public Use
  Company Number: PHEH2009US06729

PATIENT
  Sex: Male

DRUGS (2)
  1. TEGRETOL-XR [Suspect]
     Dosage: 400 MG, BID
     Dates: start: 19890101
  2. INDERAL [Concomitant]
     Dosage: 20 MG, BID

REACTIONS (5)
  - ASTHENIA [None]
  - DIZZINESS [None]
  - PANIC ATTACK [None]
  - PARKINSON'S DISEASE [None]
  - TREMOR [None]
